FAERS Safety Report 7383713-1 (Version None)
Quarter: 2011Q1

REPORT INFORMATION
  Report Type: 
  Country: None (occurrence: None)
  Receive Date: 20110330
  Receipt Date: 20110321
  Transmission Date: 20110831
  Serious: Yes (Other)
  Sender: FDA-Public Use
  Company Number: JP-ROCHE-766453

PATIENT
  Age: 57 Year
  Sex: Female

DRUGS (4)
  1. PREDNISOLONE [Concomitant]
  2. TOCILIZUMAB [Suspect]
     Indication: STILL'S DISEASE ADULT ONSET
     Route: 065
  3. PREDNISOLONE [Concomitant]
     Indication: STILL'S DISEASE ADULT ONSET
  4. TOCILIZUMAB [Suspect]
     Route: 065

REACTIONS (1)
  - HISTIOCYTOSIS HAEMATOPHAGIC [None]
